FAERS Safety Report 13343356 (Version 1)
Quarter: 2017Q1

REPORT INFORMATION
  Report Type: Spontaneous
  Country: ES (occurrence: ES)
  Receive Date: 20170316
  Receipt Date: 20170316
  Transmission Date: 20170428
  Serious: Yes (Other)
  Sender: FDA-Public Use
  Company Number: ES-MYLANLABS-2017M1015848

PATIENT

DRUGS (5)
  1. PREDNISOLONE. [Suspect]
     Active Substance: PREDNISOLONE
     Indication: PRODUCT USED FOR UNKNOWN INDICATION
     Dosage: FOR 1 YEAR
     Route: 048
  2. CICLOSPORIN [Suspect]
     Active Substance: CYCLOSPORINE
     Indication: IMMUNOSUPPRESSANT DRUG THERAPY
     Dosage: 150 MG
     Route: 065
  3. CIPROFLOXACIN. [Concomitant]
     Active Substance: CIPROFLOXACIN
     Indication: POSTOPERATIVE CARE
     Dosage: 3 MG/ML
     Route: 065
  4. MYCOPHENOLATE MOFETIL. [Suspect]
     Active Substance: MYCOPHENOLATE MOFETIL
     Indication: IMMUNOSUPPRESSANT DRUG THERAPY
     Dosage: 1 G
     Route: 065
  5. TOBRAMYCIN AND DEXAMETHASONE [Suspect]
     Active Substance: DEXAMETHASONE\TOBRAMYCIN
     Indication: IMMUNOSUPPRESSANT DRUG THERAPY
     Dosage: 1 MG/ML/3 MG/ML
     Route: 061

REACTIONS (1)
  - Hypotony of eye [Recovered/Resolved]
